FAERS Safety Report 23720558 (Version 1)
Quarter: 2024Q2

REPORT INFORMATION
  Report Type: Spontaneous
  Country: GB (occurrence: GB)
  Receive Date: 20240408
  Receipt Date: 20240408
  Transmission Date: 20240716
  Serious: Yes (Other)
  Sender: FDA-Public Use
  Company Number: GB-ABBVIE-5708760

PATIENT
  Age: 55 Year
  Sex: Female

DRUGS (1)
  1. BOTOX [Suspect]
     Active Substance: ONABOTULINUMTOXINA
     Indication: Skin cosmetic procedure
     Dosage: TIME INTERVAL: AS NECESSARY
     Route: 065
     Dates: start: 2019, end: 2023

REACTIONS (3)
  - Breast cancer metastatic [Unknown]
  - Menopause [Unknown]
  - Small cell lung cancer metastatic [Unknown]

NARRATIVE: CASE EVENT DATE: 20231101
